FAERS Safety Report 17939726 (Version 1)
Quarter: 2020Q2

REPORT INFORMATION
  Report Type: Spontaneous
  Country: US (occurrence: US)
  Receive Date: 20200624
  Receipt Date: 20200624
  Transmission Date: 20200714
  Serious: Yes (Other)
  Sender: FDA-Public Use
  Company Number: US-MYLANLABS-2020M1058076

PATIENT
  Age: 46 Year
  Sex: Female
  Weight: 63.5 kg

DRUGS (3)
  1. DEXAMETHASONE. [Suspect]
     Active Substance: DEXAMETHASONE
     Indication: ADRENOCORTICAL INSUFFICIENCY ACUTE
     Dosage: UNK
  2. HYDROCORTISONE. [Suspect]
     Active Substance: HYDROCORTISONE
     Indication: CORTISOL DEFICIENCY
     Dosage: 5MG DOSE
  3. HYDROCORTISONE. [Suspect]
     Active Substance: HYDROCORTISONE
     Indication: CORTISOL DEFICIENCY
     Dosage: 20MG CUT INTO 5MG, 3 TIMES DAY BY MOUTH

REACTIONS (19)
  - Adrenocortical insufficiency acute [Recovered/Resolved]
  - Speech disorder [Unknown]
  - Incorrect dose administered [Unknown]
  - Orthostatic hypotension [Unknown]
  - Dysphemia [Unknown]
  - Euphoric mood [Unknown]
  - Diarrhoea [Unknown]
  - Swelling [Unknown]
  - Hypervigilance [Unknown]
  - Headache [Unknown]
  - Product quality issue [Unknown]
  - Wrong technique in product usage process [Not Recovered/Not Resolved]
  - Stress [Unknown]
  - Vomiting [Unknown]
  - Dizziness [Unknown]
  - Asthenia [Unknown]
  - Weight increased [Unknown]
  - Irritability [Unknown]
  - General physical health deterioration [Unknown]

NARRATIVE: CASE EVENT DATE: 202005
